FAERS Safety Report 7271276-0 (Version None)
Quarter: 2011Q1

REPORT INFORMATION
  Report Type: 
  Country: None (occurrence: None)
  Receive Date: 20110203
  Receipt Date: 20110127
  Transmission Date: 20110831
  Serious: Yes (Hospitalization)
  Sender: FDA-Public Use
  Company Number: US-BIOGENIDEC-2010BI028178

PATIENT
  Age: 49 Year
  Sex: Female
  Weight: 104 kg

DRUGS (1)
  1. AVONEX [Suspect]
     Indication: MULTIPLE SCLEROSIS
     Route: 030
     Dates: start: 20041028

REACTIONS (2)
  - CHOLECYSTITIS [None]
  - PANCREATITIS ACUTE [None]
